FAERS Safety Report 23381865 (Version 2)
Quarter: 2024Q1

REPORT INFORMATION
  Report Type: Spontaneous
  Country: SE (occurrence: SE)
  Receive Date: 20240109
  Receipt Date: 20240123
  Transmission Date: 20240409
  Serious: Yes (Other)
  Sender: FDA-Public Use
  Company Number: None

PATIENT
  Age: 75 Year
  Sex: Female
  Weight: 73 kg

DRUGS (18)
  1. FRAGMIN [Suspect]
     Active Substance: DALTEPARIN SODIUM
     Indication: Product substitution
     Dosage: 5000 IU, 1X/DAY (1 SYRINGE DAILY DURING TWO DAYS)
     Route: 058
     Dates: start: 202302, end: 202302
  2. FRAGMIN [Suspect]
     Active Substance: DALTEPARIN SODIUM
     Indication: Pulmonary embolism
     Dosage: 18000 IU, 1X/DAY (1 INJECTION DURING 1 DAY)
     Dates: start: 202302
  3. FRAGMIN [Suspect]
     Active Substance: DALTEPARIN SODIUM
     Indication: Deep vein thrombosis
  4. CYANOCOBALAMIN [Concomitant]
     Active Substance: CYANOCOBALAMIN
     Dosage: 1 MG, 1X/DAY
     Route: 048
     Dates: start: 20210429
  5. SIMVASTATIN [Concomitant]
     Active Substance: SIMVASTATIN
     Dosage: 20 MG, 1X/DAY (FOR THE NIGHT)
     Dates: start: 20221013
  6. INOLAXOL [STERCULIA URENS GUM] [Concomitant]
     Dosage: 2 DF ((SACHETS), DAILY
     Route: 048
     Dates: start: 20190126
  7. OXAZEPAM [Concomitant]
     Active Substance: OXAZEPAM
     Dosage: 10 MG, 4X/DAY
     Route: 048
     Dates: start: 20220912
  8. FUROSEMIDE [Concomitant]
     Active Substance: FUROSEMIDE
     Dosage: 60 MG, DAILY (40MG IN MORNING, 20 MG AT LUNCH)
     Route: 048
     Dates: start: 20211018
  9. OLUMIANT [Concomitant]
     Active Substance: BARICITINIB
     Dosage: 2 MG, 1X/DAY
     Route: 048
     Dates: start: 20221013, end: 20230210
  10. FOLSYRA EVOLAN [Concomitant]
     Dosage: 5 MG, 1X/DAY
     Route: 048
     Dates: start: 20210501
  11. AMLODIPINE [Concomitant]
     Active Substance: AMLODIPINE BESYLATE
     Dosage: 5 MG, 1X/DAY
     Route: 048
     Dates: start: 20220814
  12. PREDNISOLONE [Concomitant]
     Active Substance: PREDNISOLONE
     Dosage: 7.5 MG, 1X/DAY
     Route: 048
     Dates: start: 20230125, end: 20230209
  13. PREDNISOLONE [Concomitant]
     Active Substance: PREDNISOLONE
     Dosage: 15 MG, 1X/DAY
     Route: 048
     Dates: start: 20230210
  14. PULMICORT TURBUHALER [Concomitant]
     Active Substance: BUDESONIDE
     Dosage: 400 UG, 2X/DAY
     Route: 055
     Dates: start: 20210610
  15. OMEPRAZOL TEVA [OMEPRAZOLE] [Concomitant]
     Dosage: 20 MG, 1X/DAY
     Route: 048
     Dates: start: 20210205
  16. TRAVATAN [Concomitant]
     Active Substance: TRAVOPROST
     Dosage: 1 DROP, 1X/DAY (FOR THE NIGHT)
     Route: 047
     Dates: start: 20220928
  17. METOPROLOL 1A FARMA RETARD [Concomitant]
     Dosage: 50 MG, 1X/DAY
     Route: 048
     Dates: start: 20211019
  18. WARFARIN [Concomitant]
     Active Substance: WARFARIN
     Dosage: UNK
     Route: 048
     Dates: start: 20220819, end: 20230210

REACTIONS (5)
  - Haemorrhage subcutaneous [Recovering/Resolving]
  - Peripheral swelling [Recovering/Resolving]
  - Anaemia [Recovered/Resolved]
  - Haematoma [Recovering/Resolving]
  - Soft tissue infection [Recovering/Resolving]

NARRATIVE: CASE EVENT DATE: 20230101
